FAERS Safety Report 18627584 (Version 1)
Quarter: 2020Q4

REPORT INFORMATION
  Report Type: Spontaneous
  Country: IT (occurrence: IT)
  Receive Date: 20201217
  Receipt Date: 20201217
  Transmission Date: 20210114
  Serious: Yes (Hospitalization)
  Sender: FDA-Public Use
  Company Number: IT-MYLANLABS-2020M1101543

PATIENT
  Age: 51 Year
  Sex: Female

DRUGS (5)
  1. AZITHROMYCIN ANHYDROUS. [Suspect]
     Active Substance: AZITHROMYCIN ANHYDROUS
     Indication: COVID-19
     Dosage: UNK
     Route: 065
     Dates: start: 20200101
  2. OZONE [Concomitant]
     Active Substance: OZONE
     Dosage: UNK
     Dates: start: 20200101
  3. PLAQUENIL [Concomitant]
     Active Substance: HYDROXYCHLOROQUINE SULFATE
     Dosage: UNK
     Dates: start: 20200101
  4. TOCILIZUMAB. [Suspect]
     Active Substance: TOCILIZUMAB
     Indication: COVID-19
     Dosage: UNK
     Route: 065
     Dates: start: 20200101
  5. REMDESIVIR. [Concomitant]
     Active Substance: REMDESIVIR
     Dosage: UNK

REACTIONS (4)
  - Pulmonary function test decreased [Unknown]
  - Interleukin level increased [Unknown]
  - Intentional product use issue [Unknown]
  - Off label use [Unknown]
